FAERS Safety Report 8804537 (Version 2)
Quarter: 2012Q4

REPORT INFORMATION
  Report Type: 
  Country: US (occurrence: US)
  Receive Date: 20120924
  Receipt Date: 20121012
  Transmission Date: 20130627
  Serious: Yes (Hospitalization)
  Sender: FDA-Public Use
  Company Number: US-BRISTOL-MYERS SQUIBB COMPANY-16962524

PATIENT
  Age: 52 Year
  Sex: Female
  Weight: 150 kg

DRUGS (2)
  1. ORENCIA FOR INJ [Suspect]
     Indication: RHEUMATOID ARTHRITIS
     Dosage: last infusion: 28AUG2012
1 DF= 1000 unit nos
     Route: 042
     Dates: start: 2010
  2. METHOTREXATE [Suspect]

REACTIONS (6)
  - Paronychia [Unknown]
  - Abdominal pain upper [Unknown]
  - Vomiting [Unknown]
  - Diarrhoea [Unknown]
  - Asthma [Unknown]
  - Fatigue [Unknown]
